FAERS Safety Report 11630376 (Version 3)
Quarter: 2015Q4

REPORT INFORMATION
  Report Type: Spontaneous
  Country: FR (occurrence: FR)
  Receive Date: 20151014
  Receipt Date: 20151209
  Transmission Date: 20160304
  Serious: Yes (Other)
  Sender: FDA-Public Use
  Company Number: FR-ALEXION PHARMACEUTICALS INC-A201503642

PATIENT
  Age: 32 Year
  Sex: Female

DRUGS (2)
  1. SOLIRIS [Suspect]
     Active Substance: ECULIZUMAB
     Indication: OFF LABEL USE
     Dosage: 900 MG, Q2W
     Route: 042
     Dates: start: 20151008
  2. SOLIRIS [Suspect]
     Active Substance: ECULIZUMAB
     Indication: TRANSPLANT REJECTION
     Dosage: 600 MG, QW
     Route: 042
     Dates: start: 20150911, end: 20151001

REACTIONS (2)
  - Off label use [Not Recovered/Not Resolved]
  - Renal impairment [Unknown]

NARRATIVE: CASE EVENT DATE: 20150911
